FAERS Safety Report 12427235 (Version 1)
Quarter: 2016Q2

REPORT INFORMATION
  Report Type: Spontaneous
  Country: CN (occurrence: CN)
  Receive Date: 20160602
  Receipt Date: 20160602
  Transmission Date: 20160815
  Serious: Yes (Hospitalization)
  Sender: FDA-Public Use
  Company Number: CN-JNJFOC-20160528450

PATIENT

DRUGS (2)
  1. PARACETAMOL [Suspect]
     Active Substance: ACETAMINOPHEN
     Route: 065
  2. PARACETAMOL [Suspect]
     Active Substance: ACETAMINOPHEN
     Indication: PRODUCT USED FOR UNKNOWN INDICATION
     Route: 065

REACTIONS (18)
  - Muscle enzyme increased [Unknown]
  - Liver disorder [Unknown]
  - Gout [Unknown]
  - Hyperuricaemia [Unknown]
  - Upper respiratory tract infection [Unknown]
  - Hypokalaemia [Unknown]
  - Rash morbilliform [Unknown]
  - Pyrexia [Unknown]
  - Renal impairment [Unknown]
  - Pelvic inflammatory disease [Unknown]
  - Hypocalcaemia [Unknown]
  - Toxic epidermal necrolysis [Unknown]
  - Eosinophil count increased [Unknown]
  - Drug reaction with eosinophilia and systemic symptoms [Unknown]
  - White blood cell count decreased [Unknown]
  - Hepatosplenomegaly [Unknown]
  - Neuralgia [Unknown]
  - Lymphadenopathy [Unknown]
